FAERS Safety Report 16406039 (Version 1)
Quarter: 2019Q2

REPORT INFORMATION
  Report Type: Spontaneous
  Country: US (occurrence: US)
  Receive Date: 20190607
  Receipt Date: 20190607
  Transmission Date: 20190711
  Serious: No
  Sender: FDA-Public Use
  Company Number: US-PFIZER INC-2019071122

PATIENT
  Age: 60 Year
  Sex: Female
  Weight: 72.56 kg

DRUGS (2)
  1. RELPAX [Suspect]
     Active Substance: ELETRIPTAN HYDROBROMIDE
     Indication: MIGRAINE
     Dosage: 20 MG, AS NEEDED(IF HEADACHE RETURNS THE DOSE MAY BE REPEATED AFTER 2 HRS,NO MORE THAN 2 DOSE/24HR)
     Route: 048
     Dates: start: 201904
  2. RELPAX [Suspect]
     Active Substance: ELETRIPTAN HYDROBROMIDE
     Indication: HEADACHE
     Dosage: 20 MG, 2X/DAY AT LEAST
     Route: 048

REACTIONS (3)
  - Off label use [Unknown]
  - Drug ineffective [Unknown]
  - Product use issue [Unknown]
